FAERS Safety Report 10050598 (Version 1)
Quarter: 2014Q2

REPORT INFORMATION
  Report Type: Spontaneous
  Country: US (occurrence: US)
  Receive Date: 20140401
  Receipt Date: 20140401
  Transmission Date: 20141212
  Serious: No
  Sender: FDA-Public Use
  Company Number: US-ASTRAZENECA-2013SE53564

PATIENT
  Age: 78 Year
  Sex: Female
  Weight: 61.2 kg

DRUGS (13)
  1. NEXIUM [Suspect]
     Indication: GASTROOESOPHAGEAL REFLUX DISEASE
     Route: 048
     Dates: start: 2008
  2. NEXIUM [Suspect]
     Indication: GASTROOESOPHAGEAL REFLUX DISEASE
     Route: 048
     Dates: start: 201306
  3. TOPROL [Concomitant]
     Indication: HYPERTENSION
     Route: 048
  4. TEMAZEPAM [Concomitant]
     Indication: SLEEP DISORDER
     Route: 048
     Dates: start: 2012
  5. SERTRALINE [Concomitant]
     Indication: SLEEP DISORDER
     Dosage: PRN
     Route: 048
     Dates: start: 2012
  6. VITAMIN C [Concomitant]
     Route: 048
  7. CALCIUM [Concomitant]
     Indication: OSTEOPOROSIS
     Route: 048
     Dates: start: 1983
  8. VITAMIN D3 [Concomitant]
     Indication: SUPPLEMENTATION THERAPY
     Route: 048
     Dates: start: 2012
  9. GEMFIBROZIL [Concomitant]
     Indication: BLOOD CHOLESTEROL INCREASED
     Route: 048
     Dates: start: 2012
  10. LACTOSE [Concomitant]
     Indication: LACTOSE INTOLERANCE
     Route: 048
  11. LORSARTAN [Concomitant]
     Indication: HYPERTENSION
     Route: 048
     Dates: start: 2011
  12. ZANTAC [Concomitant]
     Indication: GASTROOESOPHAGEAL REFLUX DISEASE
     Route: 048
  13. ASPIRIN [Concomitant]
     Indication: CARDIAC DISORDER
     Route: 048

REACTIONS (2)
  - Cough [Not Recovered/Not Resolved]
  - Adverse event [Unknown]
